FAERS Safety Report 8369986-7 (Version None)
Quarter: 2012Q2

REPORT INFORMATION
  Report Type: 
  Country: None (occurrence: None)
  Receive Date: 20120518
  Receipt Date: 20120515
  Transmission Date: 20120825
  Serious: Yes (Death, Hospitalization, Other)
  Sender: FDA-Public Use
  Company Number: US-AMGEN-USASP2011007694

PATIENT
  Age: 80 Year
  Sex: Female

DRUGS (15)
  1. VITAMIN D [Concomitant]
     Dosage: UNK UNK, QD
  2. NEXIUM [Concomitant]
     Dosage: 1 MG, QD
  3. IRON [Concomitant]
     Dosage: 1 MG, QD
  4. METOPROLOL [Concomitant]
     Dosage: 1 MG, BID
  5. GARLIC                             /01570501/ [Concomitant]
     Dosage: 1 MG, QD
  6. TERIPARATIDE [Concomitant]
     Dosage: 1 MUG, UNK
  7. SPIRONOLACTONE [Concomitant]
     Dosage: 1 MG, QD
  8. LEVOTHYROXINE SODIUM [Concomitant]
     Dosage: 1 MUG, UNK
  9. ENBREL [Suspect]
     Indication: RHEUMATOID ARTHRITIS
     Dosage: 50 MG, QWK
     Dates: start: 20090914, end: 20100423
  10. ASPIRIN [Concomitant]
     Dosage: 1 MG, QD
  11. PREDNISONE [Concomitant]
     Dosage: 1 MG, QD
  12. BOOST [Concomitant]
     Dosage: UNK UNK, QD
  13. LIPITOR [Concomitant]
     Dosage: 1 MG, QD
  14. GLUCOSAMINE SULFATE [Concomitant]
     Dosage: 1 MG, QD
  15. CALCIUM D3                         /01483701/ [Concomitant]
     Dosage: UNK

REACTIONS (3)
  - METASTATIC SQUAMOUS CELL CARCINOMA [None]
  - PLEURAL EFFUSION [None]
  - DEATH [None]
